FAERS Safety Report 15545170 (Version 1)
Quarter: 2018Q4

REPORT INFORMATION
  Report Type: Spontaneous
  Country: US (occurrence: US)
  Receive Date: 20181024
  Receipt Date: 20181024
  Transmission Date: 20190205
  Serious: No
  Sender: FDA-Public Use
  Company Number: US-PFIZER INC-2018423521

PATIENT
  Age: 45 Year
  Sex: Female
  Weight: 54.43 kg

DRUGS (3)
  1. VALIUM [Concomitant]
     Active Substance: DIAZEPAM
     Indication: ANXIETY
     Dosage: 10 MG, 4X/DAY
     Route: 048
     Dates: start: 2000
  2. VALIUM [Concomitant]
     Active Substance: DIAZEPAM
     Indication: INSOMNIA
  3. PRISTIQ EXTENDED-RELEASE [Suspect]
     Active Substance: DESVENLAFAXINE SUCCINATE
     Indication: ANTIDEPRESSANT THERAPY
     Dosage: 50 MG, 1X/DAY (IN THE MORNING)
     Route: 048

REACTIONS (15)
  - Disturbance in attention [Unknown]
  - Fatigue [Unknown]
  - Heart rate irregular [Unknown]
  - Abdominal pain [Unknown]
  - Withdrawal syndrome [Unknown]
  - Myalgia [Unknown]
  - Malaise [Unknown]
  - Anxiety [Unknown]
  - Catatonia [Unknown]
  - Sleep disorder [Unknown]
  - Paraesthesia [Unknown]
  - Feeling abnormal [Unknown]
  - Night sweats [Unknown]
  - Influenza like illness [Unknown]
  - Agitation [Unknown]
